FAERS Safety Report 20615684 (Version 1)
Quarter: 2022Q1

REPORT INFORMATION
  Report Type: Spontaneous
  Country: US (occurrence: None)
  Receive Date: 20220318
  Receipt Date: 20220318
  Transmission Date: 20220423
  Serious: Yes (Other)
  Sender: FDA-Public Use
  Company Number: None

PATIENT
  Age: 12 Year
  Sex: Female

DRUGS (1)
  1. GLYCOPYRROLATE [Suspect]
     Active Substance: GLYCOPYRROLATE
     Dosage: FREQUENCY : TWICE A DAY;?OTHER ROUTE : G TUBE;?
     Route: 050

REACTIONS (2)
  - Erythema [None]
  - Salivary hypersecretion [None]

NARRATIVE: CASE EVENT DATE: 20220310
